FAERS Safety Report 11528388 (Version 1)
Quarter: 2015Q3

REPORT INFORMATION
  Report Type: Spontaneous
  Country: US (occurrence: US)
  Receive Date: 20150921
  Receipt Date: 20150921
  Transmission Date: 20151125
  Serious: No
  Sender: FDA-Public Use
  Company Number: US-TEVA-525235USA

PATIENT
  Age: 70 Year
  Sex: Female

DRUGS (1)
  1. CLONAZEPAM. [Suspect]
     Active Substance: CLONAZEPAM
     Indication: ANXIETY
     Route: 065

REACTIONS (5)
  - Nightmare [Unknown]
  - Dry mouth [Unknown]
  - Sleep disorder [Unknown]
  - Product quality issue [Unknown]
  - Hallucination [Unknown]

NARRATIVE: CASE EVENT DATE: 20141120
